FAERS Safety Report 8861928 (Version 2)
Quarter: 2013Q1

REPORT INFORMATION
  Report Type: Spontaneous
  Country: JP (occurrence: JP)
  Receive Date: 20121026
  Receipt Date: 20130128
  Transmission Date: 20140127
  Serious: Yes (Life-Threatening)
  Sender: FDA-Public Use
  Company Number: JP-009507513-1210JPN009873

PATIENT
  Age: 63 Year
  Sex: Male
  Weight: 53 kg

DRUGS (8)
  1. THERAPY UNSPECIFIED [Suspect]
     Indication: WALDENSTROM^S MACROGLOBULINAEMIA
     Dosage: 12 MG, QD
     Route: 048
  2. BORTEZOMIB [Suspect]
     Indication: WALDENSTROM^S MACROGLOBULINAEMIA
     Dosage: 2 MG, QD
     Route: 042
  3. CYCLOPHOSPHAMIDE [Suspect]
     Indication: WALDENSTROM^S MACROGLOBULINAEMIA
     Dosage: 500 MG, QD
  4. CYCLOPHOSPHAMIDE [Suspect]
     Dosage: UNK
     Route: 048
     Dates: start: 200006
  5. DOXORUBICIN HYDROCHLORIDE [Suspect]
     Indication: WALDENSTROM^S MACROGLOBULINAEMIA
     Dosage: 60 MG, QD
     Route: 042
  6. VINCRISTINE SULFATE [Suspect]
     Indication: WALDENSTROM^S MACROGLOBULINAEMIA
     Dosage: 2 MG, QD
     Route: 042
  7. PREDNISOLONE [Suspect]
     Indication: WALDENSTROM^S MACROGLOBULINAEMIA
     Dosage: 100 MG, QD
     Route: 048
     Dates: start: 200006
  8. RITUXIMAB [Suspect]
     Indication: WALDENSTROM^S MACROGLOBULINAEMIA
     Dosage: 600MG DAILY
     Route: 042

REACTIONS (4)
  - Neutrophil count decreased [Not Recovered/Not Resolved]
  - Anaemia [Not Recovered/Not Resolved]
  - Platelet count decreased [Not Recovered/Not Resolved]
  - Acute myeloid leukaemia [Not Recovered/Not Resolved]
